FAERS Safety Report 9831752 (Version 1)
Quarter: 2014Q1

REPORT INFORMATION
  Report Type: Spontaneous
  Country: US (occurrence: US)
  Receive Date: 20140121
  Receipt Date: 20140121
  Transmission Date: 20141002
  Serious: No
  Sender: FDA-Public Use
  Company Number: US-PFIZER INC-2014012607

PATIENT
  Age: 82 Year
  Sex: Female

DRUGS (29)
  1. FLAGYL [Suspect]
     Dosage: UNK
  2. ARTHROTEC [Suspect]
     Dosage: UNK
  3. DOXEPIN HCL [Suspect]
     Dosage: UNK
  4. SKELAXIN [Suspect]
     Dosage: UNK
  5. METRONIDAZOLE [Suspect]
     Dosage: 500 MG, UNK
  6. MORPHINE SULFATE [Suspect]
     Dosage: 15 MG, UNK
  7. AMPICILLIN [Suspect]
     Dosage: UNK
  8. LODINE [Suspect]
     Dosage: UNK
  9. FLECTOR [Suspect]
     Dosage: UNK
  10. SULFAMETHOXAZOLE TRIMETHOPRIM [Suspect]
     Dosage: UNK
  11. OXYCODONE HYDROCHLORIDE [Suspect]
     Dosage: OXYCODONE7.5 /APAP 325)
  12. TRAMADOL HYDROCHLORIDE [Suspect]
     Dosage: UNK
  13. AMITRIPTYLINE [Suspect]
     Dosage: 25/50 MG
  14. SOMA [Suspect]
     Dosage: UNK
  15. TRAZODONE HYDROCHLORIDE [Suspect]
     Dosage: UNK
  16. EMPIRIN [Suspect]
     Dosage: UNK
  17. FLEXERIL [Suspect]
     Dosage: UNK
  18. PERCOCET [Suspect]
     Dosage: UNK
  19. PROZAC [Suspect]
     Dosage: UNK
  20. CODEINE [Suspect]
     Dosage: UNK
  21. SALSALATE [Suspect]
     Dosage: UNK
  22. AVELOX [Suspect]
     Dosage: 400 MG, UNK
  23. PRILOSEC [Suspect]
     Dosage: 20 MG, UNK
  24. DECADRON [Suspect]
     Dosage: 20 MG, UNK
  25. KEFZOL [Suspect]
     Dosage: UNK
  26. ACETAMINOPHEN [Suspect]
     Dosage: UNK
  27. LORTAB [Suspect]
     Dosage: UNK
  28. HYDROCODONE [Suspect]
     Dosage: HYDROCODONE/APAP 7.7 WC
  29. TAPENTADOL [Suspect]
     Dosage: 50 MG, UNK

REACTIONS (1)
  - Drug hypersensitivity [Unknown]
